FAERS Safety Report 10033937 (Version 1)
Quarter: 2014Q1

REPORT INFORMATION
  Report Type: Spontaneous
  Country: US (occurrence: None)
  Receive Date: 20140324
  Receipt Date: 20140324
  Transmission Date: 20141002
  Serious: Yes (Other)
  Sender: FDA-Public Use
  Company Number: None

PATIENT
  Age: 6 Year
  Sex: Male

DRUGS (2)
  1. FLUOXETINE [Suspect]
     Indication: DEPRESSION
     Dosage: 1/4 TEASPOONFUL QAM P.O.
     Dates: start: 20140227, end: 20140302
  2. DEXTROAMPHETAMINE/AMPHETAMINE ER [Concomitant]

REACTIONS (3)
  - Tremor [None]
  - Tic [None]
  - Dyskinesia [None]
